FAERS Safety Report 5595210-4 (Version None)
Quarter: 2008Q1

REPORT INFORMATION
  Report Type: 
  Country: None (occurrence: None)
  Receive Date: 20080117
  Receipt Date: 20080107
  Transmission Date: 20080703
  Serious: Yes (Hospitalization)
  Sender: FDA-Public Use
  Company Number: GB-ABBOTT-07P-167-0431315-00

PATIENT
  Age: 19 Year
  Sex: Male
  Weight: 60 kg

DRUGS (3)
  1. HUMIRA [Suspect]
     Indication: CROHN'S DISEASE
     Dates: start: 20070901, end: 20071213
  2. AZATHIOPRONE [Concomitant]
     Indication: CROHN'S DISEASE
  3. MESALIZINE [Concomitant]
     Indication: CROHN'S DISEASE

REACTIONS (4)
  - MALAISE [None]
  - PHARYNGOLARYNGEAL PAIN [None]
  - PYREXIA [None]
  - UPPER RESPIRATORY TRACT INFECTION [None]
